FAERS Safety Report 10275515 (Version 1)
Quarter: 2014Q2

REPORT INFORMATION
  Report Type: Spontaneous
  Country: US (occurrence: None)
  Receive Date: 20140630
  Receipt Date: 20140630
  Transmission Date: 20141212
  Serious: Yes (Other)
  Sender: FDA-Public Use
  Company Number: None

PATIENT
  Age: 51 Year
  Sex: Male
  Weight: 72 kg

DRUGS (2)
  1. CARBOPLATIN, HOSPIRA, 600MG/60ML [Suspect]
     Indication: HEAD AND NECK CANCER
     Route: 042
  2. TAXOL [Concomitant]

REACTIONS (4)
  - Dyspnoea [None]
  - Erythema [None]
  - Nausea [None]
  - Heart rate increased [None]
